FAERS Safety Report 25802345 (Version 1)
Quarter: 2025Q3

REPORT INFORMATION
  Report Type: Spontaneous
  Country: US (occurrence: None)
  Receive Date: 20250913
  Receipt Date: 20250913
  Transmission Date: 20251020
  Serious: Yes (Hospitalization, Disabling, Other)
  Sender: FDA-CTU
  Company Number: None

PATIENT
  Age: 46 Month
  Sex: Male
  Weight: 76.5 kg

DRUGS (1)
  1. BIMZELX [Suspect]
     Active Substance: BIMEKIZUMAB-BKZX
     Route: 030

REACTIONS (9)
  - Anger [None]
  - Insomnia [None]
  - Nightmare [None]
  - Panic attack [None]
  - Illness [None]
  - Asthenia [None]
  - Loss of personal independence in daily activities [None]
  - Disturbance in attention [None]
  - Confusional state [None]
